FAERS Safety Report 22520231 (Version 2)
Quarter: 2023Q2

REPORT INFORMATION
  Report Type: Spontaneous
  Country: US (occurrence: US)
  Receive Date: 20230605
  Receipt Date: 20230608
  Transmission Date: 20230722
  Serious: Yes (Other)
  Sender: FDA-Public Use
  Company Number: US-MLMSERVICE-20230524-4297611-1

PATIENT
  Age: 19 Year
  Sex: Female

DRUGS (2)
  1. SULFAMETHOXAZOLE\TRIMETHOPRIM [Suspect]
     Active Substance: SULFAMETHOXAZOLE\TRIMETHOPRIM
     Indication: Cellulitis
     Dosage: 1 DF, 2X/DAY
  2. ETONOGESTREL [Concomitant]
     Active Substance: ETONOGESTREL
     Dosage: UNK

REACTIONS (4)
  - Drug hypersensitivity [Unknown]
  - Pharyngeal swelling [Unknown]
  - Pyrexia [Unknown]
  - Off label use [Unknown]
